FAERS Safety Report 5708453-3 (Version None)
Quarter: 2008Q2

REPORT INFORMATION
  Report Type: 
  Country: None (occurrence: None)
  Receive Date: 20080417
  Receipt Date: 20080410
  Transmission Date: 20081010
  Serious: Yes (Other)
  Sender: FDA-Public Use
  Company Number: US-PFIZER INC-2008004449

PATIENT
  Sex: Male
  Weight: 93 kg

DRUGS (3)
  1. GEODON [Suspect]
     Indication: CYCLOTHYMIC DISORDER
     Dates: start: 20060905, end: 20070723
  2. GEODON [Suspect]
     Indication: GENERALISED ANXIETY DISORDER
  3. CYMBALTA [Suspect]
     Dosage: DAILY DOSE:60MG

REACTIONS (4)
  - AGITATION [None]
  - ANXIETY [None]
  - MOOD SWINGS [None]
  - TARDIVE DYSKINESIA [None]
